FAERS Safety Report 5412694-2 (Version None)
Quarter: 2007Q3

REPORT INFORMATION
  Report Type: 
  Country: None (occurrence: None)
  Receive Date: 20070813
  Receipt Date: 20070801
  Transmission Date: 20080115
  Serious: Yes (Hospitalization)
  Sender: FDA-Public Use
  Company Number: US-SHR-US-2007-002164

PATIENT
  Age: 70 Year
  Sex: Male
  Weight: 85.261 kg

DRUGS (7)
  1. BETASERON [Suspect]
     Indication: RELAPSING-REMITTING MULTIPLE SCLEROSIS
     Dates: start: 20030826, end: 20050228
  2. BETASERON [Suspect]
     Dates: start: 20060919, end: 20061006
  3. BETASERON [Suspect]
     Dosage: 8 MIU, 3X/WEEK
     Route: 058
     Dates: start: 20061021, end: 20060101
  4. BETASERON [Suspect]
     Dosage: 8 MIU, 3X/WEEK
     Route: 058
     Dates: start: 20070101
  5. TEGRETOL [Concomitant]
  6. NIFEDIPINE [Concomitant]
  7. AVALIDE [Concomitant]
     Dosage: 150/12.5
     Route: 048
     Dates: start: 20060101

REACTIONS (3)
  - DEEP VEIN THROMBOSIS [None]
  - PNEUMONIA [None]
  - PULMONARY EMBOLISM [None]
